FAERS Safety Report 13991490 (Version 1)
Quarter: 2017Q3

REPORT INFORMATION
  Report Type: Spontaneous
  Country: US (occurrence: US)
  Receive Date: 20170920
  Receipt Date: 20170920
  Transmission Date: 20171128
  Serious: No
  Sender: FDA-Public Use
  Company Number: US-LUPIN PHARMACEUTICALS INC.-2016-04572

PATIENT

DRUGS (1)
  1. MISOPROSTOL. [Suspect]
     Active Substance: MISOPROSTOL
     Indication: PRODUCT USED FOR UNKNOWN INDICATION
     Dosage: POTENTIALLY RECEIVED 1 TABLET
     Route: 065

REACTIONS (3)
  - Drug dispensing error [Unknown]
  - No adverse event [Unknown]
  - Incorrect dose administered [Unknown]
